FAERS Safety Report 8856065 (Version 1)
Quarter: 2012Q4

REPORT INFORMATION
  Report Type: Spontaneous
  Country: US (occurrence: None)
  Receive Date: 20121022
  Receipt Date: 20121022
  Transmission Date: 20130627
  Serious: Yes (Hospitalization)
  Sender: FDA-Public Use
  Company Number: None

PATIENT
  Age: 54 Year
  Sex: Male
  Weight: 67.9 kg

DRUGS (2)
  1. EFFIENT [Suspect]
     Indication: CARDIAC CATHETERISATION
     Dosage: 10 mg daily po
     Route: 048
     Dates: start: 20120701, end: 20121002
  2. EFFIENT [Suspect]
     Indication: STENT PLACEMENT
     Dosage: 10 mg daily po
     Route: 048
     Dates: start: 20120701, end: 20121002

REACTIONS (2)
  - Subdural haematoma [None]
  - Brain midline shift [None]
